FAERS Safety Report 5953916-9 (Version None)
Quarter: 2008Q4

REPORT INFORMATION
  Report Type: 
  Country: None (occurrence: None)
  Receive Date: 20081114
  Receipt Date: 20081104
  Transmission Date: 20090506
  Serious: Yes (Other)
  Sender: FDA-Public Use
  Company Number: US-PFIZER INC-2008088065

PATIENT
  Sex: Female

DRUGS (2)
  1. CHANTIX [Suspect]
     Indication: SMOKING CESSATION THERAPY
  2. SSRI [Concomitant]

REACTIONS (4)
  - AGITATION [None]
  - DEREALISATION [None]
  - ILL-DEFINED DISORDER [None]
  - MENTAL DISORDER [None]
